FAERS Safety Report 12945114 (Version 1)
Quarter: 2016Q4

REPORT INFORMATION
  Report Type: Not Available
  Country: FR (occurrence: FR)
  Receive Date: 20161115
  Receipt Date: 20161115
  Transmission Date: 20170207
  Serious: Yes (Death, Hospitalization)
  Sender: FDA-Public Use
  Company Number: FR-PURDUE-GBR-2016-0041679

PATIENT
  Age: 73 Year
  Sex: Female
  Weight: 48.5 kg

DRUGS (13)
  1. SCOBUREN [Suspect]
     Active Substance: BUTYLSCOPOLAMINE
     Indication: PALLIATIVE CARE
     Dosage: 3 DF, DAILY
     Route: 041
     Dates: start: 20160914, end: 20160925
  2. ZOPHREN                            /00955301/ [Concomitant]
     Active Substance: ONDANSETRON
     Dosage: 24 MG, Q24H
     Route: 042
     Dates: start: 20160911
  3. NEO-CODION                         /00012606/ [Suspect]
     Active Substance: CODEINE
     Indication: PRODUCT USED FOR UNKNOWN INDICATION
     Dosage: UNK
     Route: 048
     Dates: start: 201608, end: 20160908
  4. SPAGULAX [Concomitant]
     Active Substance: PLANTAGO OVATA SEED
     Dosage: UNK
     Dates: start: 20160911
  5. OXYNORM [Suspect]
     Active Substance: OXYCODONE HYDROCHLORIDE
     Indication: DIARRHOEA
     Dosage: 10MG/24H WITH BOLUS OF OXYNORM 3MG/H
     Route: 042
     Dates: start: 20160921, end: 20160925
  6. DUROGESIC [Suspect]
     Active Substance: FENTANYL
     Indication: PAIN
     Dosage: 6 MCG, Q1H
     Route: 003
     Dates: start: 20160914, end: 20160921
  7. INEXIUM                            /01479302/ [Concomitant]
     Active Substance: ESOMEPRAZOLE MAGNESIUM
     Dosage: 20 MG, DAILY
     Dates: start: 20160911
  8. AFATINIB [Suspect]
     Active Substance: AFATINIB
     Indication: LUNG ADENOCARCINOMA STAGE IV
     Dosage: 40 MG, DAILY
     Route: 048
     Dates: start: 20160715, end: 20160908
  9. CODOLIPRANE [Suspect]
     Active Substance: ACETAMINOPHEN\CODEINE PHOSPHATE
     Indication: PRODUCT USED FOR UNKNOWN INDICATION
     Dosage: UNK
     Route: 048
     Dates: start: 201608, end: 20160908
  10. OXYNORM [Suspect]
     Active Substance: OXYCODONE HYDROCHLORIDE
     Indication: PAIN
     Dosage: 1 TO 2 MG, PRN
     Route: 040
     Dates: start: 20160914
  11. SOLU-MEDROL [Concomitant]
     Active Substance: METHYLPREDNISOLONE SODIUM SUCCINATE
     Dosage: 1 - 4MG/KG/D
     Route: 042
     Dates: start: 20160914
  12. SPASFON                            /00765801/ [Concomitant]
     Active Substance: PHLOROGLUCINOL\1,3,5-TRIMETHOXYBENZENE
     Dosage: 6 VIALS, Q24H
     Route: 042
     Dates: start: 20160911
  13. NORMACOL [Concomitant]
     Active Substance: KARAYA GUM
     Dosage: UNK
     Dates: start: 20160911

REACTIONS (2)
  - Intestinal obstruction [Fatal]
  - Abdominal pain [Fatal]

NARRATIVE: CASE EVENT DATE: 20160908
